FAERS Safety Report 14363205 (Version 1)
Quarter: 2018Q1

REPORT INFORMATION
  Report Type: Spontaneous
  Country: US (occurrence: US)
  Receive Date: 20180105
  Receipt Date: 20180105
  Transmission Date: 20180509
  Serious: Yes (Death, Life-Threatening, Hospitalization, Disabling, Other)
  Sender: FDA-Public Use
  Company Number: None

PATIENT
  Sex: Male
  Weight: 72 kg

DRUGS (1)
  1. AMIODARONE HCL [Suspect]
     Active Substance: AMIODARONE HYDROCHLORIDE
     Dosage: ?          QUANTITY:1 TABLET(S);?
     Route: 048
     Dates: start: 20111011, end: 20111111

REACTIONS (5)
  - Toxicity to various agents [None]
  - Traumatic lung injury [None]
  - Pulmonary fibrosis [None]
  - Pancreatic neoplasm [None]
  - Ulcer haemorrhage [None]

NARRATIVE: CASE EVENT DATE: 20111011
